FAERS Safety Report 13393797 (Version 1)
Quarter: 2017Q1

REPORT INFORMATION
  Report Type: Report from Study
  Country: None (occurrence: CH)
  Receive Date: 20170331
  Receipt Date: 20170331
  Transmission Date: 20170429
  Serious: Yes (Hospitalization)
  Sender: FDA-Public Use
  Company Number: CH-ABBVIE-17P-151-1923091-00

PATIENT
  Sex: Female

DRUGS (1)
  1. DUODOPA [Suspect]
     Active Substance: CARBIDOPA\LEVODOPA
     Indication: PARKINSON^S DISEASE
     Dosage: 24H THERAPY MORNING DOSE4,0ML CONT.RATE DAY4.5ML/H, CONT.RATE NIGHT3.1ML/H EXTRA DOSE2.0ML
     Route: 050
     Dates: start: 20151117

REACTIONS (1)
  - Incontinence [Unknown]
